FAERS Safety Report 6927402-3 (Version None)
Quarter: 2010Q3

REPORT INFORMATION
  Report Type: 
  Country: None (occurrence: None)
  Receive Date: 20100817
  Receipt Date: 20100811
  Transmission Date: 20110219
  Serious: Yes (Hospitalization)
  Sender: FDA-Public Use
  Company Number: AT-TEVA-242475ISR

PATIENT
  Sex: Male
  Weight: 70 kg

DRUGS (8)
  1. PREDNISOLONE (ABIRATERONE ACETATE COMPARATOR) [Suspect]
     Indication: PROSTATE CANCER METASTATIC
     Route: 048
     Dates: start: 20080926
  2. ABIRATERONE ACETATE- BLINDED (ABIRATERONE ACETATE) / PLACEBO [Suspect]
     Indication: PROSTATE CANCER METASTATIC
     Route: 048
     Dates: start: 20080926
  3. PANTOPRAZOLE [Concomitant]
     Indication: GASTROINTESTINAL DISORDER THERAPY
     Route: 048
     Dates: start: 20080801
  4. LEKOVIT CA (CAL-D-VITA) [Concomitant]
     Indication: OSTEOPOROSIS PROPHYLAXIS
     Route: 048
     Dates: start: 20080801
  5. AMITRIPTYLINE HYDROCHLORIDE [Concomitant]
     Indication: CANCER PAIN
     Dates: start: 20080722
  6. GOSERELIN ACETATE [Concomitant]
     Indication: PROSTATE CANCER
     Route: 058
     Dates: start: 20010215
  7. GOSERELIN ACETATE [Concomitant]
     Dates: start: 20080926
  8. TRIAZOLAM [Concomitant]
     Route: 048

REACTIONS (1)
  - GASTRIC CANCER [None]
